FAERS Safety Report 23746298 (Version 1)
Quarter: 2024Q2

REPORT INFORMATION
  Report Type: Other
  Country: US (occurrence: None)
  Receive Date: 20240416
  Receipt Date: 20240416
  Transmission Date: 20240716
  Serious: Yes (Hospitalization)
  Sender: FDA-Public Use
  Company Number: US-ROCHE-3544509

PATIENT
  Age: 69 Year
  Sex: Female

DRUGS (1)
  1. ZELBORAF [Suspect]
     Active Substance: VEMURAFENIB
     Indication: Hairy cell leukaemia recurrent
     Dosage: TAKE 2 TABLET(S) BY MOUTH (480MG) TWICE A DAY
     Route: 048

REACTIONS (2)
  - Lower limb fracture [Unknown]
  - Off label use [Unknown]
